FAERS Safety Report 21010480 (Version 1)
Quarter: 2022Q2

REPORT INFORMATION
  Report Type: Spontaneous
  Country: US (occurrence: US)
  Receive Date: 20220627
  Receipt Date: 20220627
  Transmission Date: 20220721
  Serious: No
  Sender: FDA-Public Use
  Company Number: US-SLATE RUN PHARMACEUTICALS-22US001163

PATIENT

DRUGS (2)
  1. BUPROPION HYDROCHLORIDE [Suspect]
     Active Substance: BUPROPION HYDROCHLORIDE
     Indication: Hypersomnia
     Dosage: 150 MILLIGRAM, QD
     Route: 048
     Dates: start: 20211224, end: 20220601
  2. BUPROPION HYDROCHLORIDE [Concomitant]
     Active Substance: BUPROPION HYDROCHLORIDE
     Indication: Hypersomnia
     Dosage: UNK
     Dates: start: 202109, end: 20211223

REACTIONS (9)
  - Frequent bowel movements [Recovering/Resolving]
  - Abdominal distension [Recovering/Resolving]
  - Gastrointestinal sounds abnormal [Recovering/Resolving]
  - Gastritis [Recovering/Resolving]
  - Off label use [Recovered/Resolved]
  - Weight decreased [Recovering/Resolving]
  - Oesophagitis [Recovering/Resolving]
  - Constipation [Recovering/Resolving]
  - Abdominal pain upper [Recovering/Resolving]

NARRATIVE: CASE EVENT DATE: 20211224
